FAERS Safety Report 8343358-3 (Version None)
Quarter: 2012Q2

REPORT INFORMATION
  Report Type: 
  Country: None (occurrence: None)
  Receive Date: 20120508
  Receipt Date: 20120426
  Transmission Date: 20120825
  Serious: Yes (Other)
  Sender: FDA-Public Use
  Company Number: US-JNJFOC-20120212930

PATIENT
  Age: 73 Year
  Sex: Female

DRUGS (7)
  1. STELARA [Suspect]
     Route: 058
     Dates: start: 20110330
  2. STELARA [Suspect]
     Route: 058
     Dates: start: 20110629
  3. STELARA [Suspect]
     Route: 058
     Dates: start: 20110927
  4. STELARA [Suspect]
     Indication: PSORIASIS
     Route: 058
     Dates: start: 20110222
  5. STELARA [Suspect]
     Route: 058
     Dates: start: 20120103
  6. STELARA [Suspect]
     Route: 058
     Dates: start: 20110510
  7. CEPHALEXIN [Concomitant]
     Indication: IMPETIGO
     Route: 065

REACTIONS (2)
  - ACTINIC KERATOSIS [None]
  - SQUAMOUS CELL CARCINOMA [None]
